FAERS Safety Report 16328662 (Version 1)
Quarter: 2019Q2

REPORT INFORMATION
  Report Type: Spontaneous
  Country: GB (occurrence: GB)
  Receive Date: 20190518
  Receipt Date: 20190518
  Transmission Date: 20190711
  Serious: Yes (Other)
  Sender: FDA-Public Use
  Company Number: PHHY2019GB108584

PATIENT

DRUGS (1)
  1. NITROGLYCERIN. [Suspect]
     Active Substance: NITROGLYCERIN
     Indication: PERIPHERAL ISCHAEMIA
     Dosage: 10 DF, UNK
     Route: 062

REACTIONS (4)
  - Soft tissue necrosis [Recovered/Resolved]
  - Product use issue [Unknown]
  - Methaemoglobinaemia [Unknown]
  - Off label use [Unknown]
